FAERS Safety Report 25124865 (Version 3)
Quarter: 2025Q4

REPORT INFORMATION
  Report Type: Spontaneous
  Country: US (occurrence: None)
  Receive Date: 20250326
  Receipt Date: 20251217
  Transmission Date: 20260117
  Serious: Yes (Other)
  Sender: UCB
  Company Number: US-UCBSA-2025011502

PATIENT
  Age: 37 Year
  Weight: 161.02 kg

DRUGS (3)
  1. BIMZELX [Suspect]
     Active Substance: BIMEKIZUMAB-BKZX
     Indication: Hidradenitis
     Dosage: 320 MILLIGRAM, EV 2 WEEKS(QOW) (FOR WEEKS 0-16 THEN EVERY 4 WEEKS AS)
  2. ELIQUIS [Concomitant]
     Active Substance: APIXABAN
     Indication: Product used for unknown indication
  3. AMLODIPINE [Concomitant]
     Active Substance: AMLODIPINE BESYLATE
     Indication: Product used for unknown indication

REACTIONS (5)
  - Hepatic vein thrombosis [Unknown]
  - Respiratory syncytial virus infection [Unknown]
  - Illness [Unknown]
  - Product availability issue [Unknown]
  - Therapy interrupted [Unknown]
